FAERS Safety Report 7251027-6 (Version None)
Quarter: 2011Q1

REPORT INFORMATION
  Report Type: 
  Country: None (occurrence: None)
  Receive Date: 20110128
  Receipt Date: 20110120
  Transmission Date: 20110831
  Serious: Yes (Disabling)
  Sender: FDA-Public Use
  Company Number: D0069947A

PATIENT
  Sex: Female
  Weight: 61 kg

DRUGS (5)
  1. ARIXTRA [Suspect]
     Indication: THROMBOSIS PROPHYLAXIS
     Dosage: 2.5MG PER DAY
     Route: 058
     Dates: start: 20040101
  2. MARCUMAR [Concomitant]
     Indication: THROMBOSIS
     Route: 048
     Dates: end: 20040101
  3. HEPARIN [Concomitant]
     Indication: THROMBOSIS
     Route: 058
  4. ATACAND [Concomitant]
     Route: 065
  5. RAMIPRIL [Concomitant]
     Route: 065

REACTIONS (4)
  - RENAL ARTERY STENOSIS [None]
  - RENAL ARTERY OCCLUSION [None]
  - RENAL SURGERY [None]
  - RENAL DISORDER [None]
